FAERS Safety Report 21612481 (Version 1)
Quarter: 2022Q4

REPORT INFORMATION
  Report Type: Spontaneous
  Country: US (occurrence: US)
  Receive Date: 20221118
  Receipt Date: 20221118
  Transmission Date: 20230113
  Serious: No
  Sender: FDA-Public Use
  Company Number: US-BRISTOL-MYERS SQUIBB COMPANY-2022-139464

PATIENT
  Age: 77 Year
  Sex: Female
  Weight: 64.86 kg

DRUGS (1)
  1. LENALIDOMIDE [Suspect]
     Active Substance: LENALIDOMIDE
     Indication: Plasma cell myeloma
     Dosage: 3 CAPSULES DAILY ON DAYS 1-14 EVERY 21 DAYS
     Route: 048
     Dates: start: 20221004

REACTIONS (1)
  - Swelling [Not Recovered/Not Resolved]
